FAERS Safety Report 15210902 (Version 1)
Quarter: 2018Q3

REPORT INFORMATION
  Report Type: Report from Study
  Country: US (occurrence: US)
  Receive Date: 20180728
  Receipt Date: 20180728
  Transmission Date: 20181010
  Serious: Yes (Other)
  Sender: FDA-Public Use
  Company Number: US-SA-2018SA179920

PATIENT
  Age: 63 Year
  Sex: Female

DRUGS (1)
  1. INSULIN GLARGINE [Suspect]
     Active Substance: INSULIN GLARGINE
     Dosage: 10 U, QD
     Dates: start: 20000101

REACTIONS (8)
  - Dyspnoea [Unknown]
  - Chest pain [Unknown]
  - Pruritus [Unknown]
  - Hot flush [Unknown]
  - Back pain [Unknown]
  - Myocardial infarction [Unknown]
  - Hyperhidrosis [Recovered/Resolved]
  - Blood glucose increased [Unknown]

NARRATIVE: CASE EVENT DATE: 20180405
